FAERS Safety Report 15540554 (Version 1)
Quarter: 2018Q4

REPORT INFORMATION
  Report Type: Spontaneous
  Country: BE (occurrence: BE)
  Receive Date: 20181023
  Receipt Date: 20181023
  Transmission Date: 20190205
  Serious: Yes (Death, Hospitalization, Other)
  Sender: FDA-Public Use
  Company Number: BE-TEVA-2018-BE-966269

PATIENT
  Age: 59 Year
  Sex: Female

DRUGS (12)
  1. MIRTAZAPINE. [Concomitant]
     Active Substance: MIRTAZAPINE
     Dosage: HAD BEEN RECEIVING FOR }1 YEAR BEFORE PRES
  2. CISPLATIN. [Suspect]
     Active Substance: CISPLATIN
     Indication: LUNG ADENOCARCINOMA RECURRENT
     Route: 065
  3. PERINDOPRIL [Concomitant]
     Active Substance: PERINDOPRIL
  4. PEMETREXED. [Suspect]
     Active Substance: PEMETREXED
     Dosage: AS MAINTENANCE THERAPY
     Route: 065
  5. METHYLPREDNISOLONE. [Suspect]
     Active Substance: METHYLPREDNISOLONE
     Indication: LUNG ADENOCARCINOMA RECURRENT
     Dosage: 48 MILLIGRAM DAILY; STARTING 1 DAY BEFORE THE ADMINISTRATION OF PEMETREXED
     Route: 065
  6. AMLODIPINE [Concomitant]
     Active Substance: AMLODIPINE BESYLATE
  7. ACETYLSALICYLIC ACID [Concomitant]
     Active Substance: ASPIRIN
     Dosage: HAD BEEN RECEIVING FOR }1 YEAR BEFORE PRES
  8. PANTOPRAZOLE [Concomitant]
     Active Substance: PANTOPRAZOLE
     Dosage: HAD BEEN RECEIVING FOR }1 YEAR BEFORE PRES
  9. NEBIVOLOL. [Concomitant]
     Active Substance: NEBIVOLOL
  10. PEMETREXED. [Suspect]
     Active Substance: PEMETREXED
     Indication: LUNG ADENOCARCINOMA RECURRENT
     Route: 065
  11. TRAMADOL. [Concomitant]
     Active Substance: TRAMADOL
     Dosage: HAD BEEN RECEIVING FOR }1 YEAR BEFORE PRES
  12. LORMETAZEPAM [Concomitant]
     Active Substance: LORMETAZEPAM
     Dosage: HAD BEEN RECEIVING FOR }1 YEAR BEFORE PRES

REACTIONS (6)
  - Death [Fatal]
  - Posterior reversible encephalopathy syndrome [Recovering/Resolving]
  - Respiratory failure [Unknown]
  - Hypertension [Recovered/Resolved]
  - Leukocytosis [Unknown]
  - Pneumocystis jirovecii pneumonia [Unknown]
